FAERS Safety Report 9402475 (Version 1)
Quarter: 2013Q3

REPORT INFORMATION
  Report Type: Spontaneous
  Country: SE (occurrence: SE)
  Receive Date: 20130716
  Receipt Date: 20130716
  Transmission Date: 20140515
  Serious: Yes (Hospitalization, Other)
  Sender: FDA-Public Use
  Company Number: SE-ELI_LILLY_AND_COMPANY-SE201305004905

PATIENT
  Age: 30 Year
  Sex: Male

DRUGS (5)
  1. ZYPREXA [Suspect]
     Indication: SCHIZOPHRENIA
     Dosage: 20 MG, UNKNOWN
     Route: 048
     Dates: start: 20120602
  2. ZYPREXA [Suspect]
     Dosage: 30 MG, QD
     Route: 065
     Dates: start: 20130411, end: 20130426
  3. CLOZAPINE [Concomitant]
     Dosage: 1 DF, UNKNOWN
  4. ALIMEMAZINE [Concomitant]
     Dosage: 20 MG, BID
     Route: 048
     Dates: start: 20130423, end: 20130426
  5. LORAZEPAM [Concomitant]
     Dosage: 1 MG, PRN
     Route: 048
     Dates: start: 20130516

REACTIONS (4)
  - Neuroleptic malignant syndrome [Recovered/Resolved]
  - Hypoaesthesia [Recovered/Resolved]
  - Anxiety [Recovered/Resolved]
  - Prescribed overdose [Recovered/Resolved]
